FAERS Safety Report 24685440 (Version 2)
Quarter: 2024Q4

REPORT INFORMATION
  Report Type: Spontaneous
  Country: IT (occurrence: IT)
  Receive Date: 20241202
  Receipt Date: 20241206
  Transmission Date: 20250114
  Serious: Yes (Life-Threatening, Hospitalization)
  Sender: MYLAN
  Company Number: None

PATIENT
  Age: 25 Year
  Sex: Female

DRUGS (1)
  1. XANAX [Suspect]
     Active Substance: ALPRAZOLAM
     Indication: Anxiety
     Dosage: 8 DOSAGE FORM (0.5 MG / 8 TABLETS)
     Route: 048
     Dates: start: 20241112

REACTIONS (5)
  - Toxicity to various agents [Recovering/Resolving]
  - Cognitive disorder [Recovering/Resolving]
  - Alcohol abuse [Recovering/Resolving]
  - Hypotension [Recovering/Resolving]
  - Drug abuse [Recovering/Resolving]

NARRATIVE: CASE EVENT DATE: 20241112
